FAERS Safety Report 6076679-8 (Version None)
Quarter: 2009Q1

REPORT INFORMATION
  Report Type: 
  Country: None (occurrence: None)
  Receive Date: 20090213
  Receipt Date: 20090203
  Transmission Date: 20090719
  Serious: Yes (Other)
  Sender: FDA-Public Use
  Company Number: PHBS2009DE00747

PATIENT
  Age: 70 Year
  Sex: Female

DRUGS (3)
  1. ZOLEDRONIC ACID [Suspect]
     Dosage: 21 CYCLES, TOTAL DOSE 94 MG
  2. CHEMOTHERAPEUTICS NOS [Concomitant]
  3. CORTICOSTEROIDS [Concomitant]

REACTIONS (3)
  - DENTAL CARIES [None]
  - OSTEONECROSIS [None]
  - TOOTH EXTRACTION [None]
